FAERS Safety Report 19710142 (Version 1)
Quarter: 2021Q3

REPORT INFORMATION
  Report Type: Spontaneous
  Country: US (occurrence: US)
  Receive Date: 20210816
  Receipt Date: 20210816
  Transmission Date: 20211014
  Serious: Yes (Other)
  Sender: FDA-Public Use
  Company Number: US-PFIZER INC-202101015175

PATIENT
  Age: 64 Year
  Sex: Female
  Weight: 62.6 kg

DRUGS (2)
  1. CHANTIX [Suspect]
     Active Substance: VARENICLINE TARTRATE
     Dosage: UNK
     Dates: end: 20200312
  2. CHANTIX [Suspect]
     Active Substance: VARENICLINE TARTRATE
     Indication: SMOKING CESSATION THERAPY
     Dosage: UNK
     Dates: start: 2019

REACTIONS (4)
  - Nightmare [Unknown]
  - Hair growth abnormal [Unknown]
  - Recalled product administered [Unknown]
  - Breast cancer [Unknown]

NARRATIVE: CASE EVENT DATE: 202003
